FAERS Safety Report 17569264 (Version 1)
Quarter: 2020Q1

REPORT INFORMATION
  Report Type: Report from Study
  Country: GB (occurrence: GB)
  Receive Date: 20200322
  Receipt Date: 20200322
  Transmission Date: 20200409
  Serious: Yes (Death)
  Sender: FDA-Public Use
  Company Number: GB-AMGEN-GBRNI2020045580

PATIENT
  Age: 83 Year
  Sex: Female
  Weight: 78.1 kg

DRUGS (1)
  1. ETANERCEPT [Suspect]
     Active Substance: ETANERCEPT
     Indication: RHEUMATOID ARTHRITIS
     Dosage: UNK
     Route: 058
     Dates: start: 20070403, end: 20180302

REACTIONS (1)
  - Death [Fatal]

NARRATIVE: CASE EVENT DATE: 20180405
